FAERS Safety Report 5089557-8 (Version None)
Quarter: 2006Q3

REPORT INFORMATION
  Report Type: 
  Country: None (occurrence: None)
  Receive Date: 20060727
  Receipt Date: 20060606
  Transmission Date: 20061208
  Serious: Yes (Other)
  Sender: FDA-Public Use
  Company Number: 2006073457

PATIENT
  Age: 76 Year
  Sex: Female
  Weight: 54.4316 kg

DRUGS (6)
  1. LYRICA [Suspect]
     Indication: NEUROPATHY
     Dosage: 150 MG (75 MG, 2 IN 1 D), UNKNOWN
     Dates: start: 20060101, end: 20060601
  2. PREMARIN [Concomitant]
  3. ALPRAZOLAM [Concomitant]
  4. HYDROMORPHONE HCL [Concomitant]
  5. CELEBREX [Concomitant]
  6. QUININE SULFATE [Concomitant]

REACTIONS (1)
  - PERIVASCULAR DERMATITIS [None]
